FAERS Safety Report 7771184-2 (Version None)
Quarter: 2011Q3

REPORT INFORMATION
  Report Type: 
  Country: None (occurrence: None)
  Receive Date: 20110922
  Receipt Date: 20101129
  Transmission Date: 20111222
  Serious: No
  Sender: FDA-Public Use
  Company Number: US-ASTRAZENECA-2010SE56644

PATIENT
  Sex: Male

DRUGS (1)
  1. SEROQUEL XR [Suspect]
     Indication: SLEEP DISORDER
     Route: 048

REACTIONS (11)
  - WEIGHT FLUCTUATION [None]
  - MAJOR DEPRESSION [None]
  - PAIN IN EXTREMITY [None]
  - ASTHENIA [None]
  - ANXIETY [None]
  - APPETITE DISORDER [None]
  - DISTURBANCE IN ATTENTION [None]
  - GASTROINTESTINAL DISORDER [None]
  - PROSTATOMEGALY [None]
  - DEPRESSED MOOD [None]
  - ABDOMINAL PAIN [None]
